FAERS Safety Report 5942601-5 (Version None)
Quarter: 2008Q4

REPORT INFORMATION
  Report Type: 
  Country: None (occurrence: None)
  Receive Date: 20081103
  Receipt Date: 20081016
  Transmission Date: 20090506
  Serious: Yes (Hospitalization)
  Sender: FDA-Public Use
  Company Number: 2008PL000168

PATIENT
  Age: 59 Year
  Sex: Female
  Weight: 54 kg

DRUGS (7)
  1. LABETALOL HYDROCHLORIDE [Suspect]
     Indication: HYPERTENSION
     Dosage: 100 MG;QD;PO
     Route: 048
  2. CALCIUM CARBONATE [Concomitant]
  3. LOVASTATIN [Concomitant]
  4. GLIPIZIDE [Concomitant]
  5. SILYMARIN [Concomitant]
  6. ALPRAZOLAM [Concomitant]
  7. DANAZOL [Concomitant]

REACTIONS (18)
  - ANAEMIA [None]
  - ANION GAP INCREASED [None]
  - BLOOD CHLORIDE DECREASED [None]
  - BLOOD CREATININE INCREASED [None]
  - BLOOD GLUCOSE INCREASED [None]
  - BLOOD POTASSIUM INCREASED [None]
  - BLOOD PRESSURE INCREASED [None]
  - BLOOD UREA INCREASED [None]
  - DISEASE PROGRESSION [None]
  - HYPERTENSION [None]
  - LIVER DISORDER [None]
  - MYALGIA [None]
  - PALLOR [None]
  - PANCREATITIS [None]
  - QUADRIPARESIS [None]
  - RHABDOMYOLYSIS [None]
  - THYROID FUNCTION TEST ABNORMAL [None]
  - THYROXINE DECREASED [None]
